FAERS Safety Report 25214343 (Version 1)
Quarter: 2025Q2

REPORT INFORMATION
  Report Type: Spontaneous
  Country: US (occurrence: None)
  Receive Date: 20250417
  Receipt Date: 20250417
  Transmission Date: 20250717
  Serious: No
  Sender: FDA-CTU
  Company Number: None

PATIENT
  Age: 50 Year
  Sex: Male
  Weight: 25 kg

DRUGS (3)
  1. ELIQUIS [Suspect]
     Active Substance: APIXABAN
     Indication: Jugular vein thrombosis
     Dosage: FREQUENCY : TWICE A DAY;?
     Route: 048
  2. NAPROXEN [Suspect]
     Active Substance: NAPROXEN
  3. IBUPROFEN [Suspect]
     Active Substance: IBUPROFEN

REACTIONS (10)
  - Haemorrhage [None]
  - Abdominal pain [None]
  - Nausea [None]
  - Vomiting [None]
  - Faeces discoloured [None]
  - Tachycardia [None]
  - Haemoglobin decreased [None]
  - Small intestinal obstruction [None]
  - Metastatic neoplasm [None]
  - Melaena [None]

NARRATIVE: CASE EVENT DATE: 20250131
